FAERS Safety Report 14399444 (Version 2)
Quarter: 2018Q2

REPORT INFORMATION
  Report Type: Spontaneous
  Country: US (occurrence: US)
  Receive Date: 20180117
  Receipt Date: 20180416
  Transmission Date: 20180711
  Serious: Yes (Other)
  Sender: FDA-Public Use
  Company Number: US-JNJFOC-20180112543

PATIENT
  Age: 77 Year
  Sex: Male
  Weight: 76.93 kg

DRUGS (2)
  1. XARELTO [Suspect]
     Active Substance: RIVAROXABAN
     Indication: DEEP VEIN THROMBOSIS
     Route: 048
     Dates: start: 20150629, end: 201610
  2. XARELTO [Suspect]
     Active Substance: RIVAROXABAN
     Indication: PULMONARY EMBOLISM
     Route: 048
     Dates: start: 20150629, end: 201610

REACTIONS (2)
  - Rectal haemorrhage [Recovering/Resolving]
  - Tooth socket haemorrhage [Unknown]

NARRATIVE: CASE EVENT DATE: 201601
